FAERS Safety Report 7571359-1 (Version None)
Quarter: 2011Q2

REPORT INFORMATION
  Report Type: 
  Country: None (occurrence: None)
  Receive Date: 20110624
  Receipt Date: 20110615
  Transmission Date: 20111010
  Serious: Yes (Life-Threatening, Other)
  Sender: FDA-Public Use
  Company Number: B0728016A

PATIENT
  Sex: Female

DRUGS (9)
  1. PLAVIX [Concomitant]
     Dosage: 75MCG PER DAY
  2. MACROBID [Suspect]
     Route: 065
     Dates: start: 20110526, end: 20110603
  3. CLARITHROMYCIN [Suspect]
     Route: 065
     Dates: start: 20110526, end: 20110603
  4. MADOPAR [Concomitant]
     Dosage: 187.5MCG PER DAY
  5. MEMANTINE HYDROCHLORIDE [Concomitant]
     Dosage: 20MCG PER DAY
  6. AUGMENTIN '125' [Suspect]
     Route: 065
     Dates: start: 20110607
  7. LAMOTRIGINE [Suspect]
     Route: 048
     Dates: start: 20110524, end: 20110608
  8. MIRTAZAPINE [Concomitant]
     Dosage: 30MCG PER DAY
     Dates: end: 20110613
  9. AGOMELATINE [Suspect]
     Route: 048
     Dates: end: 20110608

REACTIONS (3)
  - BODY TEMPERATURE INCREASED [None]
  - JAUNDICE [None]
  - CHROMATURIA [None]
